FAERS Safety Report 14152043 (Version 3)
Quarter: 2021Q2

REPORT INFORMATION
  Report Type: Spontaneous
  Country: US (occurrence: US)
  Receive Date: 20171102
  Receipt Date: 20210525
  Transmission Date: 20210716
  Serious: Yes (Other)
  Sender: FDA-Public Use
  Company Number: US-AUROBINDO-AUR-APL-2017-42918

PATIENT
  Age: 43 Year
  Sex: Female

DRUGS (10)
  1. POSACONAZOLE [Suspect]
     Active Substance: POSACONAZOLE
     Indication: ANTIFUNGAL PROPHYLAXIS
     Dosage: 200 MILLIGRAM, 3 TIMES A DAY
     Route: 048
  2. PREDNISONE. [Suspect]
     Active Substance: PREDNISONE
     Indication: T-CELL TYPE ACUTE LEUKAEMIA
     Dosage: UNK
     Route: 065
  3. VORICONAZOLE. [Suspect]
     Active Substance: VORICONAZOLE
     Indication: BLOOD ELECTROLYTES NORMAL
     Dosage: 250 MILLIGRAM, TWO TIMES A DAY
     Route: 048
  4. ETOPOSIDE. [Suspect]
     Active Substance: ETOPOSIDE
     Indication: T-CELL TYPE ACUTE LEUKAEMIA
     Dosage: UNK
     Route: 065
  5. VORICONAZOLE. [Suspect]
     Active Substance: VORICONAZOLE
     Dosage: 200 MILLIGRAM, TWO TIMES A DAY
     Route: 048
  6. CYCLOPHOSPHAMIDE. [Suspect]
     Active Substance: CYCLOPHOSPHAMIDE
     Indication: T-CELL TYPE ACUTE LEUKAEMIA
     Dosage: UNK
     Route: 065
  7. AMPHOTERICIN B. [Suspect]
     Active Substance: AMPHOTERICIN B
     Indication: NODULAR RASH
     Dosage: UNK
     Route: 065
  8. CYTARABINE. [Suspect]
     Active Substance: CYTARABINE
     Indication: T-CELL TYPE ACUTE LEUKAEMIA
     Dosage: UNK
     Route: 065
  9. MITOXANTRONE [Suspect]
     Active Substance: MITOXANTRONE HYDROCHLORIDE
     Indication: T-CELL TYPE ACUTE LEUKAEMIA
     Dosage: UNK
     Route: 065
  10. CLOFARABINE. [Suspect]
     Active Substance: CLOFARABINE
     Indication: T-CELL TYPE ACUTE LEUKAEMIA
     Dosage: UNK
     Route: 065

REACTIONS (5)
  - Aspergillus infection [Recovering/Resolving]
  - Swelling face [Unknown]
  - Sinusitis [Unknown]
  - Febrile neutropenia [Unknown]
  - Visual impairment [Unknown]
